FAERS Safety Report 25805814 (Version 1)
Quarter: 2025Q3

REPORT INFORMATION
  Report Type: Spontaneous
  Country: JP (occurrence: JP)
  Receive Date: 20250916
  Receipt Date: 20250916
  Transmission Date: 20251021
  Serious: Yes (Hospitalization)
  Sender: ACCORD
  Company Number: JP-MLMSERVICE-20250828-PI627377-00218-1

PATIENT
  Age: 74 Year
  Sex: Female
  Weight: 46 kg

DRUGS (2)
  1. METHOTREXATE [Suspect]
     Active Substance: METHOTREXATE
     Indication: Rheumatoid arthritis
  2. ADALIMUMAB [Suspect]
     Active Substance: ADALIMUMAB
     Indication: Rheumatoid arthritis

REACTIONS (6)
  - Granuloma [Recovered/Resolved]
  - Tubulointerstitial nephritis [Recovered/Resolved]
  - Sarcoidosis [Recovered/Resolved]
  - Hypercalcaemia [Recovered/Resolved]
  - Acute kidney injury [Recovered/Resolved]
  - Uveitis [Unknown]
